FAERS Safety Report 12041315 (Version 1)
Quarter: 2016Q1

REPORT INFORMATION
  Report Type: Spontaneous
  Country: US (occurrence: US)
  Receive Date: 20160208
  Receipt Date: 20160208
  Transmission Date: 20160526
  Serious: Yes (Other)
  Sender: FDA-Public Use
  Company Number: US-PFIZER INC-2016061202

PATIENT
  Sex: Male

DRUGS (2)
  1. LYRICA [Suspect]
     Active Substance: PREGABALIN
     Dosage: 75 MG, 2X/DAY
  2. LYRICA [Suspect]
     Active Substance: PREGABALIN
     Dosage: 300 MG, 2X/DAY
     Dates: end: 20160130

REACTIONS (5)
  - Hyperhidrosis [Unknown]
  - Rhabdomyolysis [Unknown]
  - Therapy cessation [Unknown]
  - Pyrexia [Unknown]
  - Injury [Unknown]

NARRATIVE: CASE EVENT DATE: 20160130
